FAERS Safety Report 9603136 (Version 1)
Quarter: 2013Q4

REPORT INFORMATION
  Report Type: Spontaneous
  Country: US (occurrence: US)
  Receive Date: 20131007
  Receipt Date: 20131007
  Transmission Date: 20140711
  Serious: No
  Sender: FDA-Public Use
  Company Number: US-009507513-1310USA002084

PATIENT
  Sex: Female

DRUGS (1)
  1. PRIMAXIN I.V. [Suspect]
     Route: 042

REACTIONS (1)
  - Syncope [Recovered/Resolved]
